FAERS Safety Report 19908561 (Version 1)
Quarter: 2021Q4

REPORT INFORMATION
  Report Type: Spontaneous
  Country: CA (occurrence: CA)
  Receive Date: 20211001
  Receipt Date: 20211001
  Transmission Date: 20220303
  Serious: Yes (Other)
  Sender: FDA-Public Use
  Company Number: CA-TEVA-2021-CA-1960025

PATIENT
  Age: 68 Year
  Sex: Female

DRUGS (2)
  1. RISEDRONATE SODIUM [Suspect]
     Active Substance: RISEDRONATE SODIUM
     Indication: Osteoporosis
     Route: 065
  2. CALCIUM\VITAMIN D [Concomitant]
     Active Substance: CALCIUM\VITAMIN D
     Route: 048

REACTIONS (9)
  - Capillary fragility [Recovered/Resolved]
  - Ear pain [Recovered/Resolved]
  - Haematoma [Recovered/Resolved]
  - Haemorrhoids thrombosed [Recovered/Resolved]
  - Inner ear inflammation [Recovered/Resolved]
  - Neoplasm [Recovered/Resolved]
  - Pain in jaw [Recovered/Resolved]
  - Rectal haemorrhage [Recovered/Resolved]
  - Thrombosis [Recovered/Resolved]
